FAERS Safety Report 8064062-5 (Version None)
Quarter: 2012Q1

REPORT INFORMATION
  Report Type: 
  Country: None (occurrence: None)
  Receive Date: 20120123
  Receipt Date: 20120120
  Transmission Date: 20120608
  Serious: Yes (Hospitalization)
  Sender: FDA-Public Use
  Company Number: US-GLAXOSMITHKLINE-A0818277A

PATIENT
  Age: 53 Year
  Sex: Male
  Weight: 134.5 kg

DRUGS (10)
  1. GEMFIBROZIL [Concomitant]
  2. METFORMIN HYDROCHLORIDE [Concomitant]
  3. GLIPIZIDE [Concomitant]
  4. AVANDIA [Suspect]
     Indication: DIABETES MELLITUS
     Dosage: 8MG PER DAY
     Route: 048
     Dates: end: 20080601
  5. LISINOPRIL [Concomitant]
  6. OMEPRAZOLE [Concomitant]
  7. SIMVASTATIN [Concomitant]
  8. INSULIN [Concomitant]
  9. DILTIAZEM HCL [Concomitant]
  10. METOPROLOL [Concomitant]

REACTIONS (5)
  - CARDIAC FAILURE CONGESTIVE [None]
  - CORONARY ARTERY DISEASE [None]
  - CARDIOVASCULAR DISORDER [None]
  - FOOT FRACTURE [None]
  - ATRIAL FLUTTER [None]
